FAERS Safety Report 10052067 (Version 1)
Quarter: 2014Q2

REPORT INFORMATION
  Report Type: Report from Study
  Country: US (occurrence: US)
  Receive Date: 20140402
  Receipt Date: 20140402
  Transmission Date: 20141212
  Serious: Yes (Other)
  Sender: FDA-Public Use
  Company Number: US-ROCHE-1374046

PATIENT
  Sex: Male

DRUGS (2)
  1. AVASTIN [Suspect]
     Indication: COLON CANCER METASTATIC
     Route: 065
  2. AVASTIN [Suspect]
     Indication: COLON CANCER

REACTIONS (2)
  - Colon cancer metastatic [Unknown]
  - Proteinuria [Unknown]
